FAERS Safety Report 23822067 (Version 1)
Quarter: 2024Q2

REPORT INFORMATION
  Report Type: Spontaneous
  Country: US (occurrence: US)
  Receive Date: 20240506
  Receipt Date: 20240506
  Transmission Date: 20240716
  Serious: Yes (Other)
  Sender: FDA-Public Use
  Company Number: US-SA-SAC20240430001147

PATIENT
  Age: 68 Year
  Sex: Female
  Weight: 83.4 kg

DRUGS (6)
  1. DUPIXENT [Suspect]
     Active Substance: DUPILUMAB
     Indication: Nasal polyps
     Dosage: 300 MG, QOW
     Route: 058
     Dates: start: 20210129
  2. DUPIXENT [Suspect]
     Active Substance: DUPILUMAB
     Indication: Illness
  3. MOUNJARO [Concomitant]
     Active Substance: TIRZEPATIDE
  4. PREDNISONE [Concomitant]
     Active Substance: PREDNISONE
  5. TYLENOL [Concomitant]
     Active Substance: ACETAMINOPHEN
  6. ALLEGRA D-12 HOUR [Concomitant]
     Active Substance: FEXOFENADINE HYDROCHLORIDE\PSEUDOEPHEDRINE HYDROCHLORIDE

REACTIONS (4)
  - Cataract [Unknown]
  - Glaucoma [Unknown]
  - Ocular discomfort [Not Recovered/Not Resolved]
  - Middle ear effusion [Unknown]
